FAERS Safety Report 23584972 (Version 2)
Quarter: 2024Q2

REPORT INFORMATION
  Report Type: Spontaneous
  Country: US (occurrence: US)
  Receive Date: 20240301
  Receipt Date: 20240424
  Transmission Date: 20240716
  Serious: Yes (Other)
  Sender: FDA-Public Use
  Company Number: US-BRISTOL-MYERS SQUIBB COMPANY-2024-029807

PATIENT
  Age: 84 Year
  Sex: Male

DRUGS (2)
  1. POMALYST [Suspect]
     Active Substance: POMALIDOMIDE
     Indication: Adverse drug reaction
     Dosage: FREQUENCY: TAKE 1 CAPSULE BY MOUTH EVERY DAY FOR 3 WEEKS, THEN 1 WEEK OFF/TAKE 1 CAPSULE BY MOUTH DA
     Route: 048
     Dates: start: 20221017
  2. POMALYST [Suspect]
     Active Substance: POMALIDOMIDE
     Dosage: FREQUENCY: 2 WEEKS ON WITH 2 WEEKS OFF NOW

REACTIONS (6)
  - Fall [Not Recovered/Not Resolved]
  - Vascular occlusion [Not Recovered/Not Resolved]
  - Pain in extremity [Not Recovered/Not Resolved]
  - Inability to afford medication [Unknown]
  - Therapy interrupted [Unknown]
  - Off label use [Recovering/Resolving]
